FAERS Safety Report 17128518 (Version 1)
Quarter: 2019Q4

REPORT INFORMATION
  Report Type: Other
  Country: US (occurrence: US)
  Receive Date: 20191209
  Receipt Date: 20191209
  Transmission Date: 20200122
  Serious: Yes (Hospitalization, Disabling, Congenital Anomaly, Other)
  Sender: FDA-Public Use
  Company Number: US-ACI HEALTHCARE LIMITED-2077606

PATIENT
  Sex: Male
  Weight: 1.92 kg

DRUGS (4)
  1. HEROIN [Suspect]
     Active Substance: DIAMORPHINE
     Route: 064
  2. GABAPENTIN. [Suspect]
     Active Substance: GABAPENTIN
     Indication: PRODUCT USED FOR UNKNOWN INDICATION
     Route: 064
  3. BUPRENORPHINE. [Suspect]
     Active Substance: BUPRENORPHINE
     Route: 064
  4. BENZODIAZEPINES [Suspect]
     Active Substance: BENZODIAZEPINE
     Route: 064

REACTIONS (17)
  - Hypoxic-ischaemic encephalopathy [Unknown]
  - Low birth weight baby [Unknown]
  - Neonatal respiratory distress [Unknown]
  - Sepsis neonatal [Unknown]
  - Congenital multiplex arthrogryposis [Unknown]
  - Small for dates baby [Unknown]
  - Blindness [Unknown]
  - Hypotonia neonatal [Unknown]
  - Joint hyperextension [Unknown]
  - Gastrooesophageal reflux disease [Unknown]
  - Feeding intolerance [Unknown]
  - Infantile vomiting [Unknown]
  - Deafness bilateral [Unknown]
  - Drug withdrawal syndrome neonatal [Unknown]
  - Foetal exposure during pregnancy [Unknown]
  - Hydronephrosis [Unknown]
  - Developmental hip dysplasia [Unknown]
